FAERS Safety Report 6264515-6 (Version None)
Quarter: 2009Q3

REPORT INFORMATION
  Report Type: 
  Country: None (occurrence: None)
  Receive Date: 20090708
  Receipt Date: 20090626
  Transmission Date: 20100115
  Serious: Yes (Disabling)
  Sender: FDA-Public Use
  Company Number: OSCN-NO-0901S-0031

PATIENT
  Age: 36 Year
  Sex: Female

DRUGS (7)
  1. OMNISCAN [Suspect]
     Indication: DRUG USE FOR UNKNOWN INDICATION
     Dosage: 30 ML, SINGLE DOSE, I.V., 40 ML, SINGLE DOSE, I.V.
     Route: 042
     Dates: start: 20010530, end: 20010530
  2. MEGLUMINE GADOTERATE (DOTAREM) [Concomitant]
  3. EPOETIN BETA (NEORECORMON) [Concomitant]
  4. RAMIPRIL [Concomitant]
  5. ISRADIPINE (LOMIR) [Concomitant]
  6. VITAMINS (DIALYSIS VITAMINS) [Concomitant]
  7. INSULIN [Concomitant]

REACTIONS (3)
  - EJECTION FRACTION DECREASED [None]
  - MITRAL VALVE INCOMPETENCE [None]
  - NEPHROGENIC SYSTEMIC FIBROSIS [None]
